FAERS Safety Report 6890308-2 (Version None)
Quarter: 2010Q3

REPORT INFORMATION
  Report Type: 
  Country: None (occurrence: None)
  Receive Date: 20100730
  Receipt Date: 20080919
  Transmission Date: 20110219
  Serious: No
  Sender: FDA-Public Use
  Company Number: US-PFIZER INC-2007102026

PATIENT
  Age: 51 Year
  Sex: Female
  Weight: 65.909 kg

DRUGS (3)
  1. LIPITOR [Interacting]
     Indication: BLOOD CHOLESTEROL INCREASED
     Dates: start: 20071106, end: 20080918
  2. CALCIUM [Suspect]
  3. FLUCONAZOLE [Interacting]
     Indication: URINARY TRACT INFECTION
     Dates: start: 20080801

REACTIONS (8)
  - ABDOMINAL DISCOMFORT [None]
  - BLOOD CALCIUM ABNORMAL [None]
  - DRUG INTERACTION [None]
  - FEELING OF BODY TEMPERATURE CHANGE [None]
  - FLATULENCE [None]
  - GASTROOESOPHAGEAL REFLUX DISEASE [None]
  - MYALGIA [None]
  - URINARY TRACT INFECTION [None]
